FAERS Safety Report 11459505 (Version 1)
Quarter: 2015Q3

REPORT INFORMATION
  Report Type: Spontaneous
  Country: US (occurrence: US)
  Receive Date: 20150904
  Receipt Date: 20150904
  Transmission Date: 20151125
  Serious: No
  Sender: FDA-Public Use
  Company Number: US-TARO-2014TAR00161

PATIENT
  Age: 72 Year
  Sex: Female
  Weight: 66.21 kg

DRUGS (2)
  1. WARFARIN SODIUM TABLETS USP 2MG [Suspect]
     Active Substance: WARFARIN SODIUM
     Indication: DEEP VEIN THROMBOSIS
     Dosage: 30 MG, 1X/WEEK
     Route: 048
     Dates: start: 20140716
  2. WARFARIN SODIUM TABLETS USP 2MG [Suspect]
     Active Substance: WARFARIN SODIUM
     Indication: PROTEIN C DEFICIENCY
     Dosage: 24 MG, 1X/WEEK
     Route: 048
     Dates: start: 201203, end: 20140716

REACTIONS (1)
  - International normalised ratio decreased [Not Recovered/Not Resolved]

NARRATIVE: CASE EVENT DATE: 201404
